FAERS Safety Report 5019462-4 (Version None)
Quarter: 2006Q2

REPORT INFORMATION
  Report Type: 
  Country: None (occurrence: None)
  Receive Date: 20060531
  Receipt Date: 20060518
  Transmission Date: 20061013
  Serious: Yes (Hospitalization, Other)
  Sender: FDA-Public Use
  Company Number: 2006050546

PATIENT
  Age: 59 Year
  Sex: Female
  Weight: 70.8 kg

DRUGS (10)
  1. SUTENT [Suspect]
     Indication: RENAL CELL CARCINOMA STAGE UNSPECIFIED
     Dosage: 50 MG (50 MG, DAILY - INTERVAL: CYCLICAL), ORAL; SEE IMAGE
     Route: 048
     Dates: start: 20060324, end: 20060406
  2. SUTENT [Suspect]
     Indication: RENAL CELL CARCINOMA STAGE UNSPECIFIED
     Dosage: 50 MG (50 MG, DAILY - INTERVAL: CYCLICAL), ORAL; SEE IMAGE
     Route: 048
     Dates: start: 20060407, end: 20060411
  3. SUTENT [Suspect]
     Indication: RENAL CELL CARCINOMA STAGE UNSPECIFIED
     Dosage: 50 MG (50 MG, DAILY - INTERVAL: CYCLICAL), ORAL; SEE IMAGE
     Route: 048
     Dates: start: 20060505
  4. ATENOLOL [Concomitant]
  5. CINNARIZINE (CINNARIZINE) [Concomitant]
  6. LEVOTHYROXINE SODIUM [Concomitant]
  7. BENDROFLUAZIDE (BENDROFLUMETHIAZIDE) [Concomitant]
  8. FLUOXETINE [Concomitant]
  9. CO-CODAMOL (CODEINE PHOSPHATE, PARACETAMOL) [Concomitant]
  10. SERC [Concomitant]

REACTIONS (17)
  - ASTHENIA [None]
  - BRADYCARDIA [None]
  - C-REACTIVE PROTEIN INCREASED [None]
  - CHEST PAIN [None]
  - DIZZINESS [None]
  - DYSPNOEA [None]
  - DYSPNOEA EXERTIONAL [None]
  - ELECTROCARDIOGRAM QT PROLONGED [None]
  - ELECTROCARDIOGRAM T WAVE ABNORMAL [None]
  - ELECTROCARDIOGRAM T WAVE INVERSION [None]
  - MUCOSAL INFLAMMATION [None]
  - MYOCARDIAL INFARCTION [None]
  - MYOCARDIAL ISCHAEMIA [None]
  - ORAL INTAKE REDUCED [None]
  - PALLOR [None]
  - TROPONIN INCREASED [None]
  - WHEEZING [None]
